FAERS Safety Report 7313353-1 (Version None)
Quarter: 2011Q1

REPORT INFORMATION
  Report Type: 
  Country: None (occurrence: None)
  Receive Date: 20110215
  Receipt Date: 20110215
  Transmission Date: 20110831
  Serious: Yes (Other)
  Sender: FDA-Public Use
  Company Number: None

PATIENT
  Age: 52 Year
  Sex: Female
  Weight: 74.8435 kg

DRUGS (1)
  1. HYDROCODONE BITARTRATE + ACETAMINOPHEN [Suspect]
     Indication: OSTEOARTHRITIS
     Dosage: 1 -ONE- 4-6 HRS DAILY

REACTIONS (2)
  - PRODUCT SUBSTITUTION ISSUE [None]
  - DYSPEPSIA [None]
